FAERS Safety Report 8469844-3 (Version None)
Quarter: 2012Q2

REPORT INFORMATION
  Report Type: 
  Country: None (occurrence: None)
  Receive Date: 20120626
  Receipt Date: 20120621
  Transmission Date: 20120825
  Serious: Yes (Hospitalization)
  Sender: FDA-Public Use
  Company Number: DK-AMGEN-DNKCT2011065577

PATIENT
  Age: 80 Year
  Sex: Female

DRUGS (10)
  1. INSULATARD NPH HUMAN [Concomitant]
     Indication: DIABETES MELLITUS
     Dosage: UNK MG, UNK
     Route: 058
     Dates: start: 20100409
  2. ORABET [Concomitant]
     Indication: DIABETES MELLITUS
     Dosage: 500 MG, UNK
     Dates: start: 20100528
  3. CALCIUM [Concomitant]
     Indication: OSTEOPOROSIS
     Dosage: 500 MG, UNK
  4. ENALAPRIL MALEATE [Concomitant]
     Indication: HYPERTENSION
     Dosage: 400 MG, UNK
     Route: 048
     Dates: start: 20091028
  5. VITAMIN D [Concomitant]
     Indication: OSTEOPOROSIS
     Dosage: UNK MG, UNK
     Dates: start: 20050309
  6. NOVOLOG MIX 70/30 [Concomitant]
     Indication: DIABETES MELLITUS
     Dosage: UNK
     Route: 058
     Dates: start: 20090702
  7. MAGNYL [Concomitant]
     Indication: PROPHYLAXIS
     Dosage: 75 MG, UNK
     Dates: start: 20070419
  8. AMLODIPINE [Concomitant]
     Indication: HYPERTENSION
     Dosage: 5 MG, UNK
     Route: 048
     Dates: start: 20101215
  9. DENOSUMAB [Suspect]
     Indication: OSTEOPOROSIS POSTMENOPAUSAL
     Dosage: 60 MG, Q6MO
     Route: 058
     Dates: start: 20080310
  10. CODIPAR [Concomitant]
     Indication: BACK PAIN
     Dosage: 1000 MG, PRN
     Route: 048
     Dates: start: 20101201

REACTIONS (1)
  - ATYPICAL FEMUR FRACTURE [None]
